FAERS Safety Report 19310637 (Version 2)
Quarter: 2021Q2

REPORT INFORMATION
  Report Type: Report from Study
  Country: None (occurrence: US)
  Receive Date: 20210526
  Receipt Date: 20210628
  Transmission Date: 20210717
  Serious: Yes (Hospitalization)
  Sender: FDA-Public Use
  Company Number: US-ABBVIE-21P-163-3910694-00

PATIENT
  Age: 30 Year
  Sex: Male

DRUGS (5)
  1. FLUDARABINE [Concomitant]
     Active Substance: FLUDARABINE PHOSPHATE
     Indication: ACUTE MYELOID LEUKAEMIA
     Dosage: D2?4; LAST DOSE ON 04 JUN 2021
     Route: 042
  2. CYTARABINE HYDROCHLORIDE [Concomitant]
     Active Substance: CYTARABINE HYDROCHLORIDE
     Indication: ACUTE MYELOID LEUKAEMIA
     Dosage: 1.5 G/M2 OVER 4 HRS DAILY STARTING 4 HOURS AFTER DOSE FLUDARABINE ON DAYS 2?4 JUN 4 2021
     Route: 042
  3. VENETOCLAX. [Suspect]
     Active Substance: VENETOCLAX
     Indication: ACUTE MYELOID LEUKAEMIA
     Dosage: D1?D7 ? LAST DOSE RECEIVED 07?JUN 2021
     Route: 048
     Dates: start: 20210504
  4. IDARUBICIN [Concomitant]
     Active Substance: IDARUBICIN
     Indication: ACUTE MYELOID LEUKAEMIA
     Dosage: OVER 15?30 MINUTES AFTER THE COMPLETION FLUDARABINE ON DAYS 2 AND 3 JUNE 3 2021
     Route: 042
  5. POSACONAZOLE [Concomitant]
     Active Substance: POSACONAZOLE
     Indication: ACUTE MYELOID LEUKAEMIA

REACTIONS (3)
  - Tooth infection [Recovered/Resolved]
  - Febrile neutropenia [Recovered/Resolved]
  - Febrile neutropenia [Recovered/Resolved]

NARRATIVE: CASE EVENT DATE: 20210517
